FAERS Safety Report 16569360 (Version 1)
Quarter: 2019Q3

REPORT INFORMATION
  Report Type: Spontaneous
  Country: US (occurrence: US)
  Receive Date: 20190715
  Receipt Date: 20190715
  Transmission Date: 20191004
  Serious: Yes (Death, Other)
  Sender: FDA-Public Use
  Company Number: US-AMGEN-USASP2019110298

PATIENT
  Sex: Male

DRUGS (2)
  1. NIVOLUMAB [Concomitant]
     Active Substance: NIVOLUMAB
     Indication: METASTATIC MALIGNANT MELANOMA
     Dosage: UNK
     Dates: start: 201507, end: 201603
  2. TALIMOGENE LAHERPAREPVEC [Suspect]
     Active Substance: TALIMOGENE LAHERPAREPVEC
     Indication: METASTATIC MALIGNANT MELANOMA
     Dosage: UNK
     Route: 026
     Dates: end: 201603

REACTIONS (6)
  - Disease progression [Unknown]
  - Death [Fatal]
  - Off label use [Unknown]
  - Neck mass [Unknown]
  - General physical health deterioration [Recovering/Resolving]
  - Skin toxicity [Unknown]

NARRATIVE: CASE EVENT DATE: 2016
